FAERS Safety Report 6674099-6 (Version None)
Quarter: 2010Q2

REPORT INFORMATION
  Report Type: 
  Country: None (occurrence: None)
  Receive Date: 20100409
  Receipt Date: 20100326
  Transmission Date: 20101027
  Serious: Yes (Other)
  Sender: FDA-Public Use
  Company Number: GB-RANBAXY-2009RR-29720

PATIENT
  Age: 57 Year
  Sex: Female

DRUGS (3)
  1. SIMVASTATIN [Suspect]
     Indication: DRUG USE FOR UNKNOWN INDICATION
     Dosage: 20 MG, UNK
     Route: 048
  2. SIMVASTATIN [Suspect]
     Dosage: 10 MG, UNK
     Route: 048
     Dates: end: 20091203
  3. SIMVASTATIN [Suspect]
     Route: 048

REACTIONS (2)
  - BREAST CANCER [None]
  - INAPPROPRIATE SCHEDULE OF DRUG ADMINISTRATION [None]
